FAERS Safety Report 16894394 (Version 2)
Quarter: 2020Q2

REPORT INFORMATION
  Report Type: Spontaneous
  Country: US (occurrence: US)
  Receive Date: 20191008
  Receipt Date: 20200526
  Transmission Date: 20200713
  Serious: No
  Sender: FDA-Public Use
  Company Number: US-PFIZER INC-2019428486

PATIENT
  Age: 33 Year
  Sex: Female

DRUGS (13)
  1. GABAPENTIN. [Suspect]
     Active Substance: GABAPENTIN
     Indication: EPILEPSY
  2. LYRICA [Suspect]
     Active Substance: PREGABALIN
     Indication: FLUSHING
  3. SODIUM CROMOGLICATE [Suspect]
     Active Substance: CROMOLYN SODIUM
     Indication: FACIAL PAIN
  4. GABAPENTIN. [Suspect]
     Active Substance: GABAPENTIN
     Indication: FACIAL PAIN
     Dosage: UNK
  5. IVERMECTIN. [Suspect]
     Active Substance: IVERMECTIN
     Indication: FACIAL PAIN
     Dosage: UNK
  6. GABAPENTIN. [Suspect]
     Active Substance: GABAPENTIN
     Indication: FLUSHING
  7. XOLAIR [Suspect]
     Active Substance: OMALIZUMAB
     Indication: FACIAL PAIN
     Dosage: UNK
  8. IVERMECTIN. [Suspect]
     Active Substance: IVERMECTIN
     Indication: ROSACEA
  9. SODIUM CROMOGLICATE [Suspect]
     Active Substance: CROMOLYN SODIUM
     Indication: HYPERSENSITIVITY
     Dosage: UNK
  10. XOLAIR [Suspect]
     Active Substance: OMALIZUMAB
     Indication: FLUSHING
  11. IVERMECTIN. [Suspect]
     Active Substance: IVERMECTIN
     Indication: FLUSHING
  12. LYRICA [Suspect]
     Active Substance: PREGABALIN
     Indication: FACIAL PAIN
     Dosage: UNK
  13. SODIUM CROMOGLICATE [Suspect]
     Active Substance: CROMOLYN SODIUM
     Indication: FLUSHING

REACTIONS (1)
  - Drug ineffective [Unknown]
